FAERS Safety Report 14769552 (Version 5)
Quarter: 2019Q4

REPORT INFORMATION
  Report Type: Report from Study
  Country: HU (occurrence: HU)
  Receive Date: 20180417
  Receipt Date: 20191127
  Transmission Date: 20200122
  Serious: Yes (Hospitalization)
  Sender: FDA-Public Use
  Company Number: HU-ROCHE-2106407

PATIENT
  Age: 28 Year
  Sex: Male
  Weight: 63 kg

DRUGS (11)
  1. ACC [ACETYLCYSTEINE] [Concomitant]
     Active Substance: ACETYLCYSTEINE
     Indication: COUGH
     Dosage: ACC 200
     Route: 065
     Dates: start: 20180116
  2. FLOXAL [Concomitant]
     Active Substance: OFLOXACIN
     Indication: CONJUNCTIVITIS
     Dosage: 3 MG/ML
     Route: 065
     Dates: start: 20180306, end: 20180312
  3. VEMURAFENIB. [Suspect]
     Active Substance: VEMURAFENIB
     Indication: MALIGNANT MELANOMA
     Dosage: TOTAL NUMBER OF TABLETS OF LAST VEMURAFENIB ADMINISTERED PRIOR TO THE ADVERSE EVENT: 4 TABLETS?DATE
     Route: 048
     Dates: start: 20170627
  4. METHYLPREDNISOLONE ACEPONATE [Concomitant]
     Active Substance: METHYLPREDNISOLONE ACEPONATE
     Indication: BLISTER
     Route: 061
     Dates: start: 20170919
  5. BISOPROLOL [Concomitant]
     Active Substance: BISOPROLOL
     Indication: HYPERTENSION
  6. ASPIRIN [ACETYLSALICYLIC ACID] [Concomitant]
     Active Substance: ASPIRIN
     Indication: CEREBRAL INFARCTION
  7. COBIMETINIB. [Suspect]
     Active Substance: COBIMETINIB
     Indication: MALIGNANT MELANOMA
     Dosage: DATE OF MOST RECENT DOSE OF COBIMETINIB (3 TABLETS) PRIOR TO THE ADVERSE EVENT: 10/APR/2018DATE OF M
     Route: 048
     Dates: start: 20170627
  8. MOMETASON [Concomitant]
     Active Substance: MOMETASONE FUROATE
     Indication: SUNBURN
     Route: 061
     Dates: start: 20170905
  9. QUAMATEL [Concomitant]
     Active Substance: FAMOTIDINE
     Indication: ABDOMINAL PAIN UPPER
     Route: 065
     Dates: start: 20180227, end: 20180320
  10. PLACEBO [Suspect]
     Active Substance: UNSPECIFIED INGREDIENT
     Indication: MALIGNANT MELANOMA
     Dosage: DATE OF MOST RECENT OF PLACEBO DOSE PRIOR TO AE ONSET DATE: 04/APR/2018
     Route: 041
     Dates: start: 20170726
  11. PROSPAN [HEDERA HELIX LEAF] [Concomitant]
     Indication: COUGH
     Route: 065
     Dates: start: 20180129

REACTIONS (1)
  - Cerebrovascular accident [Recovered/Resolved]

NARRATIVE: CASE EVENT DATE: 20180411
